FAERS Safety Report 13879529 (Version 3)
Quarter: 2017Q3

REPORT INFORMATION
  Report Type: Report from Study
  Country: US (occurrence: US)
  Receive Date: 20170817
  Receipt Date: 20170913
  Transmission Date: 20171127
  Serious: No
  Sender: FDA-Public Use
  Company Number: US-AMGEN-USASP2017122969

PATIENT
  Age: 53 Year
  Sex: Female

DRUGS (4)
  1. MUCINEX [Concomitant]
     Active Substance: GUAIFENESIN
     Indication: SEASONAL ALLERGY
     Dosage: UNK
  2. SINGULAIR [Concomitant]
     Active Substance: MONTELUKAST SODIUM
     Indication: SEASONAL ALLERGY
     Dosage: UNK
  3. ENBREL [Suspect]
     Active Substance: ETANERCEPT
     Indication: PSORIATIC ARTHROPATHY
     Dosage: UNK UNK, QWK
     Route: 065
     Dates: start: 2017
  4. ALLEGRA [Concomitant]
     Active Substance: FEXOFENADINE HYDROCHLORIDE
     Indication: SEASONAL ALLERGY
     Dosage: UNK

REACTIONS (6)
  - Injection site urticaria [Unknown]
  - Injection site pruritus [Unknown]
  - Pain [Not Recovered/Not Resolved]
  - Injection site bruising [Unknown]
  - Drug ineffective [Unknown]
  - Upper respiratory tract infection [Unknown]

NARRATIVE: CASE EVENT DATE: 2017
